FAERS Safety Report 8771924 (Version 2)
Quarter: 2012Q4

REPORT INFORMATION
  Report Type: Report from Study
  Country: US (occurrence: US)
  Receive Date: 20120905
  Receipt Date: 20121108
  Transmission Date: 20130627
  Serious: Yes (Life-Threatening)
  Sender: FDA-Public Use
  Company Number: US-ROCHE-1111086

PATIENT
  Age: 61 Year
  Sex: Female
  Weight: 97.7 kg

DRUGS (8)
  1. TRASTUZUMAB [Suspect]
     Indication: BREAST CANCER
     Route: 042
     Dates: start: 20020111, end: 20030605
  2. TRASTUZUMAB [Suspect]
     Dosage: for 51 weeks starting day 1 of week 14
     Route: 042
     Dates: start: 20020111, end: 20030605
  3. TRASTUZUMAB [Suspect]
     Route: 065
     Dates: start: 20100714, end: 20110821
  4. DOXORUBICIN [Suspect]
     Indication: BREAST CANCER
     Dosage: date of last dose: 10/Oct/2002
     Route: 050
     Dates: start: 20020808
  5. CYCLOPHOSPHAMIDE [Suspect]
     Indication: BREAST CANCER
     Dosage: date of last dose: 10/Oct/2002
     Route: 042
     Dates: start: 20020808
  6. PACLITAXEL [Suspect]
     Indication: BREAST CANCER
     Dosage: date of last dose: 02/Jan/2003
     Route: 042
     Dates: start: 20020808
  7. CARBOPLATIN [Suspect]
     Indication: BREAST CANCER
     Route: 065
     Dates: start: 20100714, end: 20110107
  8. DOCETAXEL [Suspect]
     Indication: BREAST CANCER
     Route: 065
     Dates: start: 20100714, end: 20110107

REACTIONS (1)
  - Myelodysplastic syndrome [Not Recovered/Not Resolved]
